FAERS Safety Report 14326532 (Version 1)
Quarter: 2017Q4

REPORT INFORMATION
  Report Type: Spontaneous
  Country: US (occurrence: US)
  Receive Date: 20171226
  Receipt Date: 20171226
  Transmission Date: 20180321
  Serious: No
  Sender: FDA-Public Use
  Company Number: None

PATIENT
  Age: 57 Year
  Sex: Female

DRUGS (1)
  1. ESTRADIOL TRANSDERMAL SYSTEM [Suspect]
     Active Substance: ESTRADIOL
     Dosage: ?          OTHER FREQUENCY:WEEKLY;?
     Route: 062
     Dates: start: 20171206, end: 20171226

REACTIONS (1)
  - Skin irritation [None]

NARRATIVE: CASE EVENT DATE: 20171226
